FAERS Safety Report 24003091 (Version 1)
Quarter: 2024Q2

REPORT INFORMATION
  Report Type: Spontaneous
  Country: US (occurrence: US)
  Receive Date: 20240624
  Receipt Date: 20240624
  Transmission Date: 20240716
  Serious: No
  Sender: FDA-Public Use
  Company Number: US-SA-SAC20240617000206

PATIENT
  Sex: Male

DRUGS (1)
  1. DUPIXENT [Suspect]
     Active Substance: DUPILUMAB
     Indication: Dermatitis atopic
     Dosage: 300 MG , QOW
     Route: 058
     Dates: start: 20240520

REACTIONS (5)
  - Abdominal pain upper [Unknown]
  - Flushing [Unknown]
  - Balance disorder [Unknown]
  - Mouth ulceration [Unknown]
  - Chromaturia [Unknown]

NARRATIVE: CASE EVENT DATE: 20240601
